FAERS Safety Report 5901703-X (Version None)
Quarter: 2008Q3

REPORT INFORMATION
  Report Type: 
  Country: None (occurrence: None)
  Receive Date: 20080929
  Receipt Date: 20080922
  Transmission Date: 20090109
  Serious: Yes (Other)
  Sender: FDA-Public Use
  Company Number: B0359522A

PATIENT
  Age: 44 Year
  Sex: Male

DRUGS (5)
  1. SEROXAT [Suspect]
     Dosage: 20MG UNKNOWN
     Route: 065
     Dates: start: 19961220
  2. VOLTAREN [Concomitant]
     Route: 065
  3. PRAVASTATIN [Concomitant]
     Route: 065
  4. DICLOFENAC [Concomitant]
  5. ZIMOVANE [Concomitant]
     Dates: start: 19970916, end: 20000701

REACTIONS (7)
  - AGGRESSION [None]
  - DIZZINESS [None]
  - DRUG WITHDRAWAL SYNDROME [None]
  - INTENTIONAL OVERDOSE [None]
  - INTENTIONAL SELF-INJURY [None]
  - PARANOIA [None]
  - SUICIDAL IDEATION [None]
